FAERS Safety Report 7474215-2 (Version None)
Quarter: 2011Q2

REPORT INFORMATION
  Report Type: 
  Country: None (occurrence: None)
  Receive Date: 20110511
  Receipt Date: 20110505
  Transmission Date: 20111010
  Serious: Yes (Hospitalization)
  Sender: FDA-Public Use
  Company Number: US-GENZYME-200837502NA

PATIENT
  Sex: Male
  Weight: 136 kg

DRUGS (8)
  1. ACETAMINOPHEN [Concomitant]
     Indication: PREMEDICATION
     Dosage: 1000 MG UNK
  2. MEPERIDINE [Concomitant]
     Indication: PREMEDICATION
     Dosage: 50 MG UNK
  3. HYDROXYZINE [Concomitant]
     Indication: PREMEDICATION
     Dosage: 100 MG UNK
  4. DIOVAN [Concomitant]
     Indication: PRODUCT USED FOR UNKNOWN INDICATION
  5. CAMPATH [Suspect]
     Indication: MULTIPLE SCLEROSIS
     Dosage: 60MG IN THREE DOSES
     Route: 065
     Dates: start: 20070301
  6. SOLU-MEDROL [Concomitant]
     Indication: PREMEDICATION
     Dosage: FOR 3 DAYS PRIOR TO EACH DOSE OF CAMPATH
     Route: 042
     Dates: start: 20070301
  7. DIPHENHYDRAMINE [Concomitant]
     Indication: PREMEDICATION
     Dosage: 50 MG UNK
  8. CAMPATH [Suspect]
     Dosage: 30MG IN 3 DOSES
     Route: 065
     Dates: start: 20080601, end: 20080601

REACTIONS (1)
  - ANGIOEDEMA [None]
